FAERS Safety Report 20951136 (Version 1)
Quarter: 2022Q2

REPORT INFORMATION
  Report Type: Spontaneous
  Country: US (occurrence: None)
  Receive Date: 20220610
  Receipt Date: 20220610
  Transmission Date: 20220721
  Serious: Yes (Death)
  Sender: FDA-Public Use
  Company Number: None

PATIENT
  Age: 81 Year
  Sex: Female

DRUGS (3)
  1. ENVARSUS XR [Suspect]
     Active Substance: TACROLIMUS
     Indication: Transplant
     Dosage: FREQUENCY : DAILY;?
     Route: 048
     Dates: start: 20200819
  2. Envarsus 0.75mg [Concomitant]
     Dates: start: 20200819, end: 20220610
  3. ENVARSUS XR [Concomitant]
     Active Substance: TACROLIMUS
     Dates: start: 20200819, end: 20220610

REACTIONS (1)
  - Death [None]

NARRATIVE: CASE EVENT DATE: 20220610
